FAERS Safety Report 7707774-2 (Version None)
Quarter: 2011Q3

REPORT INFORMATION
  Report Type: 
  Country: None (occurrence: None)
  Receive Date: 20110824
  Receipt Date: 20110818
  Transmission Date: 20111222
  Serious: Yes (Life-Threatening)
  Sender: FDA-Public Use
  Company Number: GB-ABBOTT-11P-167-0834423-00

PATIENT
  Age: 75 Year
  Sex: Female

DRUGS (14)
  1. CANDESARTAN CILEXETIL [Concomitant]
     Indication: PRODUCT USED FOR UNKNOWN INDICATION
  2. IBUPROFEN [Concomitant]
     Indication: PRODUCT USED FOR UNKNOWN INDICATION
     Dosage: INTERVAL - AS NECESSARY  INDICATIONS  DRUG
  3. PARACETAMOL [Concomitant]
     Indication: PRODUCT USED FOR UNKNOWN INDICATION
     Dosage: INTERVAL - AS NECESSARY  INDICATIONS  DRUG
  4. SEVELAMER [Concomitant]
     Indication: PRODUCT USED FOR UNKNOWN INDICATION
     Dosage: TAKEN WITH MEALS
  5. AMITRIPTYLINE HCL [Concomitant]
     Indication: PRODUCT USED FOR UNKNOWN INDICATION
     Dosage: NOCTE
  6. DEXAMETHASONE [Concomitant]
     Indication: PRODUCT USED FOR UNKNOWN INDICATION
  7. TAMOXIFEN CITRATE [Concomitant]
     Indication: PRODUCT USED FOR UNKNOWN INDICATION
  8. DOCUSATE [Concomitant]
     Indication: PRODUCT USED FOR UNKNOWN INDICATION
     Dosage: 2-3 TIMES PER DAY
  9. DOCUSATE SODIUM [Concomitant]
     Indication: PRODUCT USED FOR UNKNOWN INDICATION
     Dosage: 2-3 TIMES A DAY
  10. CLARITHROMYCIN [Suspect]
     Indication: LOWER RESPIRATORY TRACT INFECTION
     Route: 048
     Dates: start: 20110501, end: 20110501
  11. FENTANYL [Interacting]
     Indication: PAIN
     Route: 062
     Dates: end: 20110501
  12. DOXAZOSIN MESYLATE [Concomitant]
     Indication: PRODUCT USED FOR UNKNOWN INDICATION
  13. ZOPICLONE [Concomitant]
     Indication: PRODUCT USED FOR UNKNOWN INDICATION
     Dosage: ONE AT NIGHT
  14. CLARITHROMYCIN [Interacting]
     Indication: RESPIRATORY TRACT INFECTION
     Dosage: 1000MG, 500MG 2 IN 1 DAY
     Route: 048
     Dates: start: 20110608, end: 20110613

REACTIONS (4)
  - RESPIRATORY ARREST [None]
  - DRUG INTERACTION [None]
  - SOMNOLENCE [None]
  - RESPIRATORY FAILURE [None]
